FAERS Safety Report 16007322 (Version 1)
Quarter: 2019Q1

REPORT INFORMATION
  Report Type: Report from Study
  Country: ES (occurrence: ES)
  Receive Date: 20190226
  Receipt Date: 20190226
  Transmission Date: 20190418
  Serious: Yes (Hospitalization)
  Sender: FDA-Public Use
  Company Number: ES-MYLANLABS-2019M1016128

PATIENT
  Age: 86 Year
  Sex: Female

DRUGS (7)
  1. SERTRALINE [Suspect]
     Active Substance: SERTRALINE HYDROCHLORIDE
     Indication: DEPRESSION
     Dosage: 1-1/2-0
     Route: 048
     Dates: start: 201709
  2. COAPROVEL [Concomitant]
     Active Substance: HYDROCHLOROTHIAZIDE\IRBESARTAN
     Dosage: 1/24H
     Route: 048
     Dates: start: 200911
  3. ADIRO [Concomitant]
     Active Substance: ASPIRIN
     Dosage: 1/24H
     Route: 048
     Dates: start: 201103
  4. ORFIDAL [Concomitant]
     Active Substance: LORAZEPAM
     Dosage: SI ANSIEDAD
     Route: 048
  5. SULPIRIDA [Concomitant]
     Dosage: 1-0-1
     Route: 048
     Dates: start: 201709
  6. ATORVASTATINA NORMON [Concomitant]
     Dosage: 1/24H
     Route: 048
     Dates: start: 201704
  7. REXER [Suspect]
     Active Substance: MIRTAZAPINE
     Indication: DEPRESSION
     Dosage: 0-0-1
     Route: 048
     Dates: start: 201709

REACTIONS (3)
  - Fall [Recovered/Resolved]
  - Syncope [Recovered/Resolved]
  - Head injury [Recovered/Resolved]

NARRATIVE: CASE EVENT DATE: 20171006
